FAERS Safety Report 12882444 (Version 1)
Quarter: 2016Q4

REPORT INFORMATION
  Report Type: Spontaneous
  Country: US (occurrence: US)
  Receive Date: 20161025
  Receipt Date: 20161025
  Transmission Date: 20170207
  Serious: Yes (Other)
  Sender: FDA-Public Use
  Company Number: US-BAYER-2016-171591

PATIENT
  Age: 58 Year
  Sex: Male

DRUGS (1)
  1. RID 1-2-3 SYSTEM [Suspect]
     Active Substance: PIPERONYL BUTOXIDE\PYRETHRUM EXTRACT
     Indication: PARASITIC INFECTION PROPHYLAXIS
     Dosage: UNK, ONCE
     Route: 061
     Dates: start: 20160827, end: 20160827

REACTIONS (8)
  - Eye irritation [Unknown]
  - Eye burns [None]
  - Accidental exposure to product [Unknown]
  - Eye irritation [Unknown]
  - Product use issue [None]
  - Dyspnoea [Unknown]
  - Corneal abrasion [None]
  - Ocular hyperaemia [Unknown]

NARRATIVE: CASE EVENT DATE: 20160827
